FAERS Safety Report 18937917 (Version 2)
Quarter: 2021Q1

REPORT INFORMATION
  Report Type: Spontaneous
  Country: US (occurrence: US)
  Receive Date: 20210225
  Receipt Date: 20210303
  Transmission Date: 20210420
  Serious: Yes (Death, Hospitalization, Other)
  Sender: FDA-Public Use
  Company Number: US-PFIZER INC-2021160824

PATIENT
  Age: 35 Year
  Sex: Female

DRUGS (2)
  1. DOXORUBICIN HCL [Suspect]
     Active Substance: DOXORUBICIN HYDROCHLORIDE
     Indication: OSTEOSARCOMA
     Dosage: UNK, CYCLIC (RECEIVED A TOTAL OF 450 MG/M2 DOXORUBICIN AT THE END OF HER TREATMENT COURSE,6CYCLES)
  2. CISPLATIN. [Concomitant]
     Active Substance: CISPLATIN
     Indication: OSTEOSARCOMA
     Dosage: UNK, CYCLIC (6 CYCLES)

REACTIONS (4)
  - Cardiac failure [Fatal]
  - Pulmonary congestion [Fatal]
  - Congestive hepatopathy [Fatal]
  - Effusion [Fatal]
